FAERS Safety Report 4271805-5 (Version None)
Quarter: 2004Q1

REPORT INFORMATION
  Report Type: 
  Country: None (occurrence: None)
  Receive Date: 20040115
  Receipt Date: 20040107
  Transmission Date: 20041129
  Serious: Yes (Other)
  Sender: FDA-Public Use
  Company Number: GB-GLAXOSMITHKLINE-B0319216A

PATIENT
  Age: 46 Year
  Sex: Female
  Weight: 94 kg

DRUGS (10)
  1. LAMOTRIGINE [Suspect]
     Indication: DEPRESSION
     Route: 048
     Dates: start: 20031119
  2. WARFARIN SODIUM [Suspect]
     Indication: DEEP VEIN THROMBOSIS
     Route: 048
     Dates: start: 19990101
  3. PHENELZINE [Concomitant]
     Indication: DEPRESSION
     Dosage: 45MG PER DAY
     Route: 048
     Dates: start: 20030716
  4. FOLIC ACID [Concomitant]
     Dosage: 5MG PER DAY
     Route: 048
     Dates: start: 20031129
  5. CHLORPROMAZINE [Concomitant]
     Dosage: 75MG PER DAY
     Route: 048
     Dates: start: 20031118
  6. LITHIUM CARBONATE [Concomitant]
     Indication: MOOD SWINGS
     Dosage: 600MG PER DAY
     Route: 048
     Dates: start: 20030505
  7. CORACTEN [Concomitant]
     Indication: ANGINA PECTORIS
     Route: 048
     Dates: start: 20030505
  8. THYROXINE [Concomitant]
     Indication: HYPOTHYROIDISM
     Dosage: 150MCG PER DAY
     Route: 048
     Dates: start: 20030505
  9. LIPOSTAT [Concomitant]
     Dosage: 40MG PER DAY
     Route: 048
     Dates: start: 20030505
  10. FRUSEMIDE [Concomitant]
     Dosage: 20MG PER DAY
     Route: 048
     Dates: start: 20030505

REACTIONS (2)
  - DRUG INTERACTION [None]
  - INTERNATIONAL NORMALISED RATIO INCREASED [None]
